FAERS Safety Report 18766275 (Version 2)
Quarter: 2021Q1

REPORT INFORMATION
  Report Type: Spontaneous
  Country: JP (occurrence: JP)
  Receive Date: 20210120
  Receipt Date: 20210208
  Transmission Date: 20210419
  Serious: Yes (Other)
  Sender: FDA-Public Use
  Company Number: JP-AMGEN-JPNSP2021008571

PATIENT
  Age: 9 Decade
  Sex: Female

DRUGS (9)
  1. LANSOPRAZOLE. [Concomitant]
     Active Substance: LANSOPRAZOLE
     Dosage: 15 MILLIGRAM, QD, MORNING
     Route: 065
     Dates: start: 20210108
  2. CALCIUM L?ASPARTATE [Concomitant]
     Dosage: 400 MILLIGRAM, BID, MORNING AND EVENING
     Route: 065
     Dates: start: 20210108
  3. LANSOPRAZOLE. [Concomitant]
     Active Substance: LANSOPRAZOLE
     Dosage: 10 MILLIGRAM
     Route: 065
  4. PRALIA [Suspect]
     Active Substance: DENOSUMAB
     Indication: OSTEOPOROSIS
     Dosage: UNK UNK, Q6MO
     Route: 065
  5. SPIRONOLACTONE. [Concomitant]
     Active Substance: SPIRONOLACTONE
     Dosage: 25 MILLIGRAM, QD, MORNING
     Route: 065
     Dates: start: 20210108
  6. NESINA [Concomitant]
     Active Substance: ALOGLIPTIN BENZOATE
     Dosage: 25 MILLIGRAM, QD, MORNING
     Route: 065
     Dates: start: 20210108
  7. MAGNESIUM OXIDE. [Concomitant]
     Active Substance: MAGNESIUM OXIDE
     Dosage: 500 MILLIGRAM, QD, MORNING
     Route: 065
     Dates: start: 20210108
  8. NIFEDIPINE L [Concomitant]
     Active Substance: NIFEDIPINE
     Dosage: 10 MILLIGRAM, BID, MORNING AND EVENING
     Route: 065
     Dates: start: 20210108
  9. ISOSORBIDE DINITRATE. [Concomitant]
     Active Substance: ISOSORBIDE DINITRATE
     Dosage: 1 SHEET PER DAY
     Route: 050
     Dates: start: 20210108

REACTIONS (5)
  - Asthma [Unknown]
  - Vomiting [Unknown]
  - Diarrhoea [Unknown]
  - Hyponatraemia [Not Recovered/Not Resolved]
  - Altered state of consciousness [Not Recovered/Not Resolved]

NARRATIVE: CASE EVENT DATE: 20190424
